FAERS Safety Report 4600954-4 (Version None)
Quarter: 2005Q1

REPORT INFORMATION
  Report Type: 
  Country: None (occurrence: None)
  Receive Date: 20050204
  Receipt Date: 20040921
  Transmission Date: 20050727
  Serious: Yes (Death)
  Sender: FDA-Public Use
  Company Number: PHEH2004US10150

PATIENT
  Age: 46 Year
  Sex: Male

DRUGS (3)
  1. CLOZARIL [Suspect]
     Dosage: 700 MG, QD, ORAL
     Route: 048
     Dates: start: 20020714
  2. BUPROPION (BUPROPION) [Concomitant]
  3. FLUOXETINE [Concomitant]

REACTIONS (1)
  - DEATH [None]
